FAERS Safety Report 13891046 (Version 2)
Quarter: 2017Q4

REPORT INFORMATION
  Report Type: Spontaneous
  Country: AU (occurrence: AU)
  Receive Date: 20170822
  Receipt Date: 20171015
  Transmission Date: 20180320
  Serious: Yes (Hospitalization, Other)
  Sender: FDA-Public Use
  Company Number: AU-AMGEN-AUSSP2017124886

PATIENT
  Sex: Male

DRUGS (3)
  1. ARANESP [Suspect]
     Active Substance: DARBEPOETIN ALFA
     Indication: MYELODYSPLASTIC SYNDROME
     Dosage: 150 MUG, QWK
     Route: 058
     Dates: start: 201612, end: 20170816
  2. CLEXANE [Concomitant]
     Active Substance: ENOXAPARIN SODIUM
     Dosage: UNK
  3. VIDAZA [Concomitant]
     Active Substance: AZACITIDINE
     Dosage: UNK

REACTIONS (7)
  - Arterial occlusive disease [Unknown]
  - Blister [Recovering/Resolving]
  - Skin disorder [Recovering/Resolving]
  - Infection [Recovering/Resolving]
  - Skin necrosis [Recovering/Resolving]
  - Skin reaction [Recovering/Resolving]
  - Injection site reaction [Recovering/Resolving]

NARRATIVE: CASE EVENT DATE: 201707
